FAERS Safety Report 7474402-3 (Version None)
Quarter: 2011Q2

REPORT INFORMATION
  Report Type: 
  Country: None (occurrence: None)
  Receive Date: 20110512
  Receipt Date: 20110503
  Transmission Date: 20111010
  Serious: Yes (Hospitalization, Disabling, Other)
  Sender: FDA-Public Use
  Company Number: US-BAYER-2011-002595

PATIENT
  Sex: Female

DRUGS (2)
  1. AVELOX [Suspect]
     Indication: UPPER RESPIRATORY TRACT INFECTION
     Dosage: 400 MG, UNK
     Route: 048
     Dates: start: 20110105, end: 20110105
  2. ACETAMINOPHEN [Concomitant]
     Indication: EAR PAIN

REACTIONS (4)
  - ANAPHYLACTIC REACTION [None]
  - THROAT TIGHTNESS [None]
  - URTICARIA [None]
  - ANGIOEDEMA [None]
